FAERS Safety Report 24616504 (Version 1)
Quarter: 2024Q4

REPORT INFORMATION
  Report Type: Spontaneous
  Country: US (occurrence: US)
  Receive Date: 20241114
  Receipt Date: 20241114
  Transmission Date: 20250115
  Serious: No
  Sender: BIOGEN
  Company Number: US-BIOGEN-2016BI00225452

PATIENT
  Age: 46 Year
  Sex: Female

DRUGS (1)
  1. TECFIDERA [Suspect]
     Active Substance: DIMETHYL FUMARATE
     Indication: Multiple sclerosis
     Dosage: START DATE OF TECFIDERA ALSO REPORTED AS 18-FEB-2016
     Route: 050
     Dates: start: 20160217, end: 20231101

REACTIONS (6)
  - Muscle spasms [Not Recovered/Not Resolved]
  - Emotional distress [Unknown]
  - Stress [Unknown]
  - Gastrointestinal disorder [Unknown]
  - Feeling abnormal [Recovered/Resolved]
  - Diarrhoea [Recovered/Resolved]

NARRATIVE: CASE EVENT DATE: 20160416
